FAERS Safety Report 19642090 (Version 1)
Quarter: 2021Q3

REPORT INFORMATION
  Report Type: Report from Study
  Country: PH (occurrence: PH)
  Receive Date: 20210730
  Receipt Date: 20210730
  Transmission Date: 20211014
  Serious: Yes (Hospitalization, Other)
  Sender: FDA-Public Use
  Company Number: PH-ASTRAZENECA-2021A638407

PATIENT
  Age: 82 Year
  Sex: Female

DRUGS (1)
  1. TAGRISSO [Suspect]
     Active Substance: OSIMERTINIB
     Indication: LUNG NEOPLASM MALIGNANT
     Route: 048
     Dates: start: 2019, end: 20210710

REACTIONS (4)
  - Pulmonary oedema [Unknown]
  - COVID-19 [Unknown]
  - Pneumonia [Unknown]
  - Pleural effusion [Unknown]
